FAERS Safety Report 4663664-3 (Version None)
Quarter: 2005Q2

REPORT INFORMATION
  Report Type: 
  Country: None (occurrence: None)
  Receive Date: 20050511
  Receipt Date: 20050323
  Transmission Date: 20051028
  Serious: Yes (Other)
  Sender: FDA-Public Use
  Company Number: 399738

PATIENT
  Sex: Male

DRUGS (1)
  1. PEGASYS [Suspect]
     Indication: HEPATITIS C VIRUS
     Dosage: SUBCUTANEOUS
     Route: 058

REACTIONS (1)
  - HEPATIC CIRRHOSIS [None]
